FAERS Safety Report 24108959 (Version 1)
Quarter: 2024Q3

REPORT INFORMATION
  Report Type: Report from Study
  Country: US (occurrence: US)
  Receive Date: 20240718
  Receipt Date: 20240718
  Transmission Date: 20241016
  Serious: Yes (Other)
  Sender: ABBVIE
  Company Number: US-ABBVIE-5842616

PATIENT
  Sex: Male

DRUGS (1)
  1. HUMIRA [Suspect]
     Active Substance: ADALIMUMAB
     Indication: Uveitis
     Dosage: FORM STRENGTH 40 MILLIGRAMS
     Route: 058

REACTIONS (3)
  - Blindness [Not Recovered/Not Resolved]
  - Uveitis [Not Recovered/Not Resolved]
  - Eye inflammation [Not Recovered/Not Resolved]
